FAERS Safety Report 23959074 (Version 1)
Quarter: 2024Q2

REPORT INFORMATION
  Report Type: Other
  Country: JP (occurrence: JP)
  Receive Date: 20240611
  Receipt Date: 20240611
  Transmission Date: 20240715
  Serious: Yes (Life-Threatening, Hospitalization)
  Sender: FDA-Public Use
  Company Number: JP-CHUGAI-A2009004432

PATIENT
  Age: 61 Year
  Sex: Female
  Weight: 61 kg

DRUGS (12)
  1. AVASTIN [Suspect]
     Active Substance: BEVACIZUMAB
     Indication: Colon cancer metastatic
     Route: 041
     Dates: start: 20070829, end: 20090114
  2. FLUOROURACIL [Suspect]
     Active Substance: FLUOROURACIL
     Indication: Colon cancer metastatic
     Route: 041
     Dates: start: 20070829, end: 20090114
  3. ISOVORIN [Suspect]
     Active Substance: LEUCOVORIN CALCIUM
     Indication: Colon cancer metastatic
     Route: 041
     Dates: start: 20070829, end: 20090114
  4. CALSLOT (JAPAN) [Concomitant]
     Indication: Hypertension
     Dosage: DOSAGE IS UNCERTAIN.
     Route: 048
     Dates: start: 20040205
  5. BETAHISTINE MESILATE [Concomitant]
     Active Substance: BETAHISTINE MESILATE
     Indication: Dizziness
     Dosage: DOSAGE IS UNCERTAIN.
     Route: 048
     Dates: start: 20040205
  6. SHIN-BIOFERMIN S [Concomitant]
     Indication: Gastrointestinal disorder
     Route: 048
     Dates: start: 20040220
  7. TAGAMET [Concomitant]
     Active Substance: CIMETIDINE
     Indication: Peptic ulcer
     Dosage: DOSAGE IS UNCERTAIN.
     Route: 048
     Dates: start: 20050309
  8. MAGNESIUM OXIDE [Concomitant]
     Active Substance: MAGNESIUM OXIDE
     Indication: Constipation
     Dosage: DOSAGE IS UNCERTAIN.
     Route: 048
     Dates: start: 20050314
  9. DECADRON [Concomitant]
     Active Substance: DEXAMETHASONE
     Indication: Prophylaxis of nausea and vomiting
     Route: 041
     Dates: start: 20050408, end: 20090114
  10. ZOLPIDEM TARTRATE [Concomitant]
     Active Substance: ZOLPIDEM TARTRATE
     Indication: Insomnia
     Dosage: DOSAGE IS UNCERTAIN.
     Route: 048
     Dates: start: 20060501
  11. DISOPYRAMIDE [Concomitant]
     Active Substance: DISOPYRAMIDE
     Indication: Ventricular extrasystoles
     Route: 048
     Dates: start: 20070313
  12. KYTRIL [Concomitant]
     Active Substance: GRANISETRON HYDROCHLORIDE
     Indication: Prophylaxis of nausea and vomiting
     Dosage: DRUG REPORTED AS KYTRIL INJECTION
     Route: 041
     Dates: start: 20070829, end: 20090114

REACTIONS (2)
  - Acute cholecystitis necrotic [Recovering/Resolving]
  - Gallbladder rupture [Recovering/Resolving]

NARRATIVE: CASE EVENT DATE: 20090117
